FAERS Safety Report 17936980 (Version 5)
Quarter: 2021Q3

REPORT INFORMATION
  Report Type: Spontaneous
  Country: US (occurrence: US)
  Receive Date: 20200624
  Receipt Date: 20210715
  Transmission Date: 20211014
  Serious: Yes (Other)
  Sender: FDA-Public Use
  Company Number: US-GILEAD-2020-0475000

PATIENT
  Age: 52 Year
  Sex: Male

DRUGS (60)
  1. VIREAD [Suspect]
     Active Substance: TENOFOVIR DISOPROXIL FUMARATE
     Indication: HIV INFECTION
     Dosage: UNK
     Route: 048
     Dates: start: 2005, end: 200903
  2. VIREAD [Suspect]
     Active Substance: TENOFOVIR DISOPROXIL FUMARATE
     Dosage: UNK
     Route: 065
     Dates: start: 200310, end: 200406
  3. TYLENOL [Concomitant]
     Active Substance: ACETAMINOPHEN
     Dosage: UNK
     Route: 065
     Dates: end: 202105
  4. TACROLIMUS. [Concomitant]
     Active Substance: TACROLIMUS
     Dosage: UNK
     Route: 065
     Dates: start: 20200124
  5. PROCTOZONE HC [Concomitant]
     Active Substance: HYDROCORTISONE
     Dosage: UNK
     Route: 065
     Dates: start: 20121212, end: 20130318
  6. METAMUCIL CITRON [Concomitant]
     Active Substance: HERBALS\PLANTAGO OVATA SEED\PLANTAGO SEED
     Dosage: UNK
     Route: 065
     Dates: start: 201610, end: 201611
  7. SEVELAMER [Concomitant]
     Active Substance: SEVELAMER
     Dosage: UNK
     Route: 065
     Dates: start: 20121213, end: 20201026
  8. HEPARIN [Concomitant]
     Active Substance: HEPARIN SODIUM
     Dosage: UNK
     Route: 065
     Dates: start: 20121212, end: 202010
  9. VANCOMYCIN [Concomitant]
     Active Substance: VANCOMYCIN
     Dosage: UNK
     Route: 065
     Dates: start: 20181001, end: 201810
  10. LISINOPRIL. [Concomitant]
     Active Substance: LISINOPRIL
     Dosage: UNK
     Route: 065
     Dates: start: 20130314, end: 201401
  11. NIFEDIPINE. [Concomitant]
     Active Substance: NIFEDIPINE
     Dosage: UNK
     Route: 065
     Dates: start: 20160127, end: 202104
  12. MINOXIDIL. [Concomitant]
     Active Substance: MINOXIDIL
     Dosage: UNK
     Route: 065
     Dates: start: 20180105, end: 202010
  13. VEMLIDY [Concomitant]
     Active Substance: TENOFOVIR ALAFENAMIDE FUMARATE
     Dosage: UNK
     Route: 065
     Dates: start: 201910, end: 202010
  14. CEFTAZIDIME. [Concomitant]
     Active Substance: CEFTAZIDIME
     Dosage: UNK
     Route: 065
     Dates: start: 20181001, end: 201811
  15. LASIX [Concomitant]
     Active Substance: FUROSEMIDE
     Dosage: UNK
     Route: 065
     Dates: start: 20201023, end: 20201108
  16. PREDNISONE. [Concomitant]
     Active Substance: PREDNISONE
     Dosage: UNK
     Route: 065
     Dates: start: 20201024
  17. CLONIDINE HCL [Concomitant]
     Active Substance: CLONIDINE HYDROCHLORIDE
     Dosage: UNK
     Route: 065
     Dates: start: 20170111
  18. VIREAD [Suspect]
     Active Substance: TENOFOVIR DISOPROXIL FUMARATE
     Dosage: UNK
     Route: 048
     Dates: start: 20030315, end: 200406
  19. ACETAMINOPHEN. [Concomitant]
     Active Substance: ACETAMINOPHEN
     Dosage: UNK
     Route: 065
     Dates: start: 20160127
  20. TRAMADOL. [Concomitant]
     Active Substance: TRAMADOL
     Dosage: UNK
     Route: 065
     Dates: start: 20161026, end: 20201024
  21. DOCUSATE SODIUM. [Concomitant]
     Active Substance: DOCUSATE SODIUM
     Dosage: UNK
     Route: 065
     Dates: start: 20151130, end: 20201024
  22. CALCIUM ACETATE. [Concomitant]
     Active Substance: CALCIUM ACETATE
     Dosage: UNK
     Route: 065
     Dates: start: 20170118, end: 202011
  23. STENDRA [Concomitant]
     Active Substance: AVANAFIL
     Indication: ERECTILE DYSFUNCTION
     Dosage: UNK
     Route: 065
     Dates: start: 20130326
  24. AZITHROMYCIN ANHYDROUS. [Concomitant]
     Active Substance: AZITHROMYCIN ANHYDROUS
     Indication: BRONCHITIS
     Dosage: UNK
     Route: 065
     Dates: start: 20061220, end: 20061220
  25. AZITHROMYCIN ANHYDROUS. [Concomitant]
     Active Substance: AZITHROMYCIN ANHYDROUS
     Dosage: UNK
     Route: 065
     Dates: start: 201310, end: 201610
  26. FLOMAX [MORNIFLUMATE] [Concomitant]
     Active Substance: MORNIFLUMATE
     Dosage: UNK
     Route: 065
     Dates: start: 20201024
  27. EPIVIR [Concomitant]
     Active Substance: LAMIVUDINE
     Dosage: UNK
     Route: 065
     Dates: start: 20060401
  28. FERROUS SULFATE. [Concomitant]
     Active Substance: FERROUS SULFATE
     Dosage: UNK
     Route: 065
     Dates: start: 20131022
  29. MYCOPHENOLATE MOFETIL. [Concomitant]
     Active Substance: MYCOPHENOLATE MOFETIL
     Dosage: UNK
     Route: 065
     Dates: start: 20201024
  30. FOLIC ACID. [Concomitant]
     Active Substance: FOLIC ACID
     Dosage: UNK
     Route: 065
     Dates: start: 201310, end: 202010
  31. SENOKOT [Concomitant]
     Active Substance: SENNOSIDES
     Dosage: UNK
     Route: 065
     Dates: start: 201610, end: 202010
  32. CIALIS [Concomitant]
     Active Substance: TADALAFIL
     Dosage: UNK
     Route: 065
     Dates: start: 201107, end: 201610
  33. AMOXICILLIN. [Concomitant]
     Active Substance: AMOXICILLIN
     Dosage: UNK
     Route: 065
     Dates: start: 20110509, end: 202010
  34. COMBIVIR [Concomitant]
     Active Substance: LAMIVUDINE\ZIDOVUDINE
     Dosage: UNK
     Route: 065
     Dates: start: 200503, end: 200801
  35. SUSTIVA [Concomitant]
     Active Substance: EFAVIRENZ
     Dosage: UNK
     Route: 065
     Dates: start: 20060418, end: 200605
  36. TIVICAY [Concomitant]
     Active Substance: DOLUTEGRAVIR SODIUM
     Dosage: UNK
     Route: 065
     Dates: start: 20140610
  37. HYDRALAZINE [Concomitant]
     Active Substance: HYDRALAZINE HYDROCHLORIDE
     Dosage: UNK
     Route: 065
     Dates: start: 20170109, end: 20201028
  38. VIREAD [Suspect]
     Active Substance: TENOFOVIR DISOPROXIL FUMARATE
     Dosage: UNK
     Route: 048
     Dates: start: 200406, end: 20050303
  39. BIKTARVY [Concomitant]
     Active Substance: BICTEGRAVIR SODIUM\EMTRICITABINE\TENOFOVIR ALAFENAMIDE FUMARATE
     Dosage: UNK
     Route: 065
     Dates: start: 20201105
  40. LIPITOR [Concomitant]
     Active Substance: ATORVASTATIN CALCIUM
     Indication: HYPERLIPIDAEMIA
     Dosage: UNK
     Route: 065
     Dates: start: 20201024
  41. RENO [SODIUM BICARBONATE] [Concomitant]
     Dosage: UNK
     Route: 065
     Dates: start: 20160229, end: 20180823
  42. BACTRIM [Concomitant]
     Active Substance: SULFAMETHOXAZOLE\TRIMETHOPRIM
     Dosage: UNK
     Route: 065
     Dates: start: 20121221
  43. NORVIR [Concomitant]
     Active Substance: RITONAVIR
     Dosage: UNK
     Route: 065
     Dates: start: 20031015, end: 20160825
  44. FLUDROCORTISONE [Concomitant]
     Active Substance: FLUDROCORTISONE
     Dosage: UNK
     Route: 065
     Dates: start: 202010, end: 202012
  45. VALGANCICLOVIR. [Concomitant]
     Active Substance: VALGANCICLOVIR
     Dosage: UNK
     Route: 065
     Dates: start: 20201024, end: 202012
  46. VIREAD [Suspect]
     Active Substance: TENOFOVIR DISOPROXIL FUMARATE
     Dosage: UNK
     Route: 048
     Dates: start: 20050503, end: 20191010
  47. PANTOPRAZOLE [Concomitant]
     Active Substance: PANTOPRAZOLE
     Dosage: UNK
     Route: 065
     Dates: start: 20201024, end: 202012
  48. RETROVIR [Concomitant]
     Active Substance: ZIDOVUDINE
     Dosage: UNK
     Route: 065
     Dates: start: 20031015, end: 20130927
  49. AMLODIPINE BESYLATE. [Concomitant]
     Active Substance: AMLODIPINE BESYLATE
     Dosage: UNK
     Route: 065
     Dates: start: 20160226, end: 20160816
  50. CIPROFLOXACIN. [Concomitant]
     Active Substance: CIPROFLOXACIN
     Dosage: UNK
     Route: 065
     Dates: start: 201203, end: 201610
  51. TRUVADA [Suspect]
     Active Substance: EMTRICITABINE\TENOFOVIR DISOPROXIL FUMARATE
     Indication: HIV INFECTION
     Dosage: UNK
     Route: 048
     Dates: start: 20060425, end: 200605
  52. DESCOVY [Concomitant]
     Active Substance: EMTRICITABINE\TENOFOVIR ALAFENAMIDE FUMARATE
  53. CALCITRIOL. [Concomitant]
     Active Substance: CALCITRIOL
     Dosage: UNK
     Route: 065
     Dates: start: 20121214, end: 202105
  54. CARVEDILOL. [Concomitant]
     Active Substance: CARVEDILOL
     Indication: HYPERTENSION
     Dosage: UNK
     Route: 065
     Dates: start: 20131029
  55. ASPIRINA [Concomitant]
     Active Substance: ASPIRIN
     Dosage: UNK
  56. REYATAZ [Concomitant]
     Active Substance: ATAZANAVIR SULFATE
     Dosage: UNK
     Route: 065
     Dates: start: 20031015, end: 20160205
  57. VIDEX [Concomitant]
     Active Substance: DIDANOSINE
     Dosage: UNK
     Route: 065
     Dates: start: 20130311, end: 20131010
  58. GEMFIBROZIL. [Concomitant]
     Active Substance: GEMFIBROZIL
     Dosage: UNK
     Route: 065
     Dates: start: 20160418, end: 20160815
  59. IBUPROFEN. [Concomitant]
     Active Substance: IBUPROFEN
     Dosage: UNK
     Route: 065
     Dates: end: 201406
  60. OXYCODONE [Concomitant]
     Active Substance: OXYCODONE
     Dosage: UNK
     Route: 065
     Dates: start: 201610, end: 201612

REACTIONS (8)
  - Chronic kidney disease [Unknown]
  - Emotional distress [Unknown]
  - Pain [Unknown]
  - Renal failure [Unknown]
  - Somnolence [Unknown]
  - End stage renal disease [Not Recovered/Not Resolved]
  - Nephropathy [Not Recovered/Not Resolved]
  - Chronic kidney disease-mineral and bone disorder [Recovered/Resolved]

NARRATIVE: CASE EVENT DATE: 20121213
